FAERS Safety Report 17246042 (Version 2)
Quarter: 2020Q1

REPORT INFORMATION
  Report Type: Spontaneous
  Country: US (occurrence: US)
  Receive Date: 20200108
  Receipt Date: 20200122
  Transmission Date: 20200409
  Serious: Yes (Hospitalization)
  Sender: FDA-Public Use
  Company Number: US-ZYDUS-046190

PATIENT
  Age: 45 Year
  Sex: Female

DRUGS (9)
  1. DULOXETINE/DULOXETINE HYDROCHLORIDE [Concomitant]
     Active Substance: DULOXETINE HYDROCHLORIDE
  2. AMLODIPINE [Concomitant]
     Active Substance: AMLODIPINE BESYLATE
  3. CLONAZEPAM. [Concomitant]
     Active Substance: CLONAZEPAM
  4. LAMOTRIGINE. [Suspect]
     Active Substance: LAMOTRIGINE
     Indication: MAJOR DEPRESSION
  5. DEXAMETHASONE. [Concomitant]
     Active Substance: DEXAMETHASONE
     Dosage: INITIALLY 10 MG/M2 FOR 2 WEEKS FOLLOWED BY 5 MG/M2 FOR 2 WEEKS,
  6. CHOLECALCIFEROL [Concomitant]
     Active Substance: CHOLECALCIFEROL
  7. PRAZOSIN. [Concomitant]
     Active Substance: PRAZOSIN
  8. METHOTREXATE/METHOTREXATE SODIUM [Concomitant]
     Active Substance: METHOTREXATE\METHOTREXATE SODIUM
     Route: 039
  9. ETOPOSIDE/ETOPOSIDE PHOSPHATE [Concomitant]
     Active Substance: ETOPOSIDE
     Dosage: DOSE: 150 MG/M2 TWICE WEEKLY FOR 2 WEEKS AND THEN WEEKLY

REACTIONS (9)
  - Influenza like illness [Unknown]
  - Ventricular fibrillation [Recovered/Resolved]
  - Musculoskeletal stiffness [Unknown]
  - Pyrexia [Unknown]
  - Sepsis [Unknown]
  - Respiratory failure [Unknown]
  - Cardiac arrest [Recovered/Resolved]
  - Haemophagocytic lymphohistiocytosis [Recovered/Resolved]
  - Stress cardiomyopathy [Recovered/Resolved]
